FAERS Safety Report 10557324 (Version 6)
Quarter: 2015Q2

REPORT INFORMATION
  Report Type: Spontaneous
  Country: US (occurrence: US)
  Receive Date: 20141031
  Receipt Date: 20150612
  Transmission Date: 20150821
  Serious: Yes (Hospitalization, Other)
  Sender: FDA-Public Use
  Company Number: US-BAYER-2014-156428

PATIENT
  Age: 31 Year
  Sex: Female
  Weight: 82 kg

DRUGS (4)
  1. IMITREX [Concomitant]
     Active Substance: SUMATRIPTAN\SUMATRIPTAN SUCCINATE
  2. MIRENA [Suspect]
     Active Substance: LEVONORGESTREL
     Indication: CONTRACEPTION
     Dosage: 20 MCG/24HR, CONT
     Route: 015
     Dates: start: 20120717, end: 20121029
  3. ZOFRAN [Concomitant]
     Active Substance: ONDANSETRON HYDROCHLORIDE
  4. BENADRYL [Concomitant]
     Active Substance: DIPHENHYDRAMINE HYDROCHLORIDE
     Route: 042

REACTIONS (13)
  - Benign hydatidiform mole [None]
  - Abortion incomplete [None]
  - Anxiety [None]
  - Drug ineffective [None]
  - Device dislocation [None]
  - Injury [None]
  - Vaginal haemorrhage [None]
  - Abdominal pain lower [None]
  - Abdominal discomfort [None]
  - Uterine pain [None]
  - Uterine perforation [None]
  - Pregnancy with contraceptive device [None]
  - Pain [None]

NARRATIVE: CASE EVENT DATE: 201208
